FAERS Safety Report 7480288-3 (Version None)
Quarter: 2011Q2

REPORT INFORMATION
  Report Type: 
  Country: None (occurrence: None)
  Receive Date: 20110516
  Receipt Date: 20110512
  Transmission Date: 20111010
  Serious: Yes (Hospitalization)
  Sender: FDA-Public Use
  Company Number: IT-SP-2011-02548

PATIENT
  Sex: Male

DRUGS (1)
  1. IMMUCYST [Suspect]
     Indication: BLADDER TRANSITIONAL CELL CARCINOMA
     Route: 043
     Dates: start: 20050906, end: 20070109

REACTIONS (9)
  - CONSTIPATION [None]
  - DYSURIA [None]
  - TUBERCULOSIS BLADDER [None]
  - TUBERCULIN TEST POSITIVE [None]
  - ASTHENIA [None]
  - HAEMOGLOBIN DECREASED [None]
  - HYPERPYREXIA [None]
  - WEIGHT DECREASED [None]
  - ABDOMINAL PAIN LOWER [None]
